FAERS Safety Report 21329640 (Version 1)
Quarter: 2022Q3

REPORT INFORMATION
  Report Type: Spontaneous
  Country: US (occurrence: None)
  Receive Date: 20220913
  Receipt Date: 20220913
  Transmission Date: 20221027
  Serious: No
  Sender: FDA-Public Use
  Company Number: None

PATIENT
  Age: 40 Year
  Sex: Female
  Weight: 59.4 kg

DRUGS (2)
  1. ROCEPHIN [Suspect]
     Active Substance: CEFTRIAXONE SODIUM
  2. PEPCID [Concomitant]
     Active Substance: FAMOTIDINE

REACTIONS (5)
  - Infusion related reaction [None]
  - Pruritus [None]
  - Urticaria [None]
  - Dyspnoea [None]
  - Adverse drug reaction [None]

NARRATIVE: CASE EVENT DATE: 20220913
